FAERS Safety Report 13980842 (Version 1)
Quarter: 2017Q3

REPORT INFORMATION
  Report Type: Spontaneous
  Country: RO (occurrence: RO)
  Receive Date: 20170918
  Receipt Date: 20170918
  Transmission Date: 20171128
  Serious: Yes (Death, Hospitalization)
  Sender: FDA-Public Use
  Company Number: RO-ROCHE-1994118

PATIENT
  Age: 61 Year
  Sex: Male

DRUGS (1)
  1. AVASTIN [Suspect]
     Active Substance: BEVACIZUMAB
     Indication: COLORECTAL CANCER METASTATIC
     Route: 042
     Dates: start: 201707, end: 20170912

REACTIONS (5)
  - Coma [Unknown]
  - Loss of consciousness [Unknown]
  - Cerebrovascular accident [Fatal]
  - Hallucination [Unknown]
  - Death [Fatal]

NARRATIVE: CASE EVENT DATE: 20170912
